FAERS Safety Report 4427090-4 (Version None)
Quarter: 2004Q3

REPORT INFORMATION
  Report Type: 
  Country: None (occurrence: None)
  Receive Date: 20040811
  Receipt Date: 20040727
  Transmission Date: 20050211
  Serious: Yes (Hospitalization, Disabling, Other)
  Sender: FDA-Public Use
  Company Number: US_0407103982

PATIENT
  Age: 85 Year
  Sex: Male

DRUGS (1)
  1. HUMULIN N [Suspect]
     Dates: start: 19990818

REACTIONS (3)
  - LEG AMPUTATION [None]
  - PHARMACEUTICAL PRODUCT COMPLAINT [None]
  - SPEECH DISORDER [None]
